FAERS Safety Report 4526295-1 (Version None)
Quarter: 2004Q4

REPORT INFORMATION
  Report Type: 
  Country: None (occurrence: None)
  Receive Date: 20041203
  Receipt Date: 20040726
  Transmission Date: 20050328
  Serious: Yes (Other)
  Sender: FDA-Public Use
  Company Number: 002216

PATIENT
  Age: 67 Year
  Sex: Female

DRUGS (6)
  1. ESTRADIOL [Suspect]
     Dates: start: 20020223, end: 20030517
  2. ESTROPIPATE [Suspect]
     Dates: start: 20000118, end: 20040301
  3. AYGESTIN [Suspect]
     Dates: start: 20000118, end: 20000414
  4. PROMETRIUM [Suspect]
     Dates: start: 20000802, end: 20040301
  5. PREMPRO [Suspect]
     Dates: start: 19981111, end: 20000118
  6. COMBIPATCH [Suspect]
     Dates: start: 20000414, end: 20000802

REACTIONS (1)
  - BREAST CANCER [None]
